FAERS Safety Report 21115875 (Version 1)
Quarter: 2022Q3

REPORT INFORMATION
  Report Type: Spontaneous
  Country: US (occurrence: US)
  Receive Date: 20220721
  Receipt Date: 20220721
  Transmission Date: 20221026
  Serious: No
  Sender: FDA-Public Use
  Company Number: US-SA-SAC20220719000442

PATIENT
  Age: 76 Year
  Sex: Male

DRUGS (6)
  1. DUPIXENT [Suspect]
     Active Substance: DUPILUMAB
     Indication: Nasal polyps
     Dosage: UNK UNK, QOW
     Route: 058
     Dates: start: 20210211
  2. KETOCONAZOLE [Concomitant]
     Active Substance: KETOCONAZOLE
  3. VICTOZA [Concomitant]
     Active Substance: LIRAGLUTIDE
  4. LOSARTAN [Concomitant]
     Active Substance: LOSARTAN
  5. ESCITALOPRAM [Concomitant]
     Active Substance: ESCITALOPRAM OXALATE
  6. METFORMIN [Concomitant]
     Active Substance: METFORMIN HYDROCHLORIDE

REACTIONS (1)
  - Product use in unapproved indication [Unknown]
